FAERS Safety Report 7501477-5 (Version None)
Quarter: 2011Q2

REPORT INFORMATION
  Report Type: 
  Country: None (occurrence: None)
  Receive Date: 20110524
  Receipt Date: 20090115
  Transmission Date: 20111010
  Serious: Yes (Hospitalization, Other)
  Sender: FDA-Public Use
  Company Number: US-BAYER-2011-021588

PATIENT
  Age: 71 Year
  Sex: Male
  Weight: 68.027 kg

DRUGS (14)
  1. TOPROL-XL [Concomitant]
     Dosage: 25 MG, QD
     Route: 048
  2. CEFUROXIME [Concomitant]
     Dosage: 1.5 GM/15 ML/100 MG/ML
     Route: 042
     Dates: start: 20060125, end: 20060127
  3. MANNITOL [Concomitant]
     Dosage: UNK
     Route: 042
     Dates: start: 20060126
  4. LODINE [Concomitant]
     Dosage: 300 MG, UNK
     Route: 048
  5. HEPARIN [Concomitant]
     Dosage: 42,000 UNITS
     Route: 042
     Dates: start: 20060126
  6. HEPARIN [Concomitant]
     Dosage: 2500 UNITS IN 500 ML NORMAL SALINE
     Route: 042
     Dates: start: 20060626
  7. BENADRYL [Concomitant]
     Indication: HYPOTENSION
     Dosage: UNK
     Route: 042
     Dates: start: 20060126
  8. ACETYLSALICYLIC ACID SRT [Concomitant]
     Dosage: 325 MG, QD
     Route: 048
  9. PROTAMINE SULFATE [Concomitant]
     Dosage: UNK
     Dates: start: 20060126
  10. TYLENOL REGULAR [Concomitant]
  11. ZOCOR [Concomitant]
     Dosage: 20 MG AT BEDTIME
     Route: 048
  12. TRASYLOL [Suspect]
     Indication: CORONARY ARTERY BYPASS
     Dosage: 1.4 MG,HAD A REACTION TO TEST DOSE AMICAR GIVEN
     Route: 042
     Dates: start: 20060126, end: 20060126
  13. AMICAR [Concomitant]
     Indication: DRUG HYPERSENSITIVITY
     Dosage: 40 MG/MIN (5 GMS)
     Dates: start: 20060126
  14. METHOTREXATE [Concomitant]
     Dosage: 2.5 MG, 5 TABLETS EVERY MONDAY
     Dates: start: 19810101

REACTIONS (12)
  - UNEVALUABLE EVENT [None]
  - PAIN [None]
  - PARKINSON'S DISEASE [None]
  - EMOTIONAL DISTRESS [None]
  - FEAR [None]
  - ANXIETY [None]
  - RENAL INJURY [None]
  - STRESS [None]
  - MULTI-ORGAN FAILURE [None]
  - ANHEDONIA [None]
  - RENAL FAILURE [None]
  - RENAL IMPAIRMENT [None]
